FAERS Safety Report 8478647-5 (Version None)
Quarter: 2012Q2

REPORT INFORMATION
  Report Type: 
  Country: None (occurrence: None)
  Receive Date: 20120629
  Receipt Date: 20120619
  Transmission Date: 20120825
  Serious: Yes (Hospitalization)
  Sender: FDA-Public Use
  Company Number: GB-PFIZER INC-2012106433

PATIENT
  Age: 54 Year
  Sex: Male

DRUGS (5)
  1. INFUMORPH [Concomitant]
     Dosage: 60 MG, 2X/DAY
     Route: 048
     Dates: start: 20120403
  2. GEMCITABINE [Suspect]
     Indication: TRANSITIONAL CELL CARCINOMA
     Dosage: 2000 MG, CYCLIC
     Route: 042
     Dates: start: 20120424
  3. LANSOPRAZOLE [Concomitant]
     Dosage: 30 MG, 1X/DAY
     Route: 048
     Dates: start: 20120417
  4. CISPLATIN [Suspect]
     Indication: TRANSITIONAL CELL CARCINOMA
     Dosage: 140 MG, CYCLIC
     Route: 042
     Dates: start: 20120424
  5. SUNITINIB MALATE [Suspect]
     Indication: TRANSITIONAL CELL CARCINOMA
     Dosage: 25 MG (FREQUENCY UNSPECIFIED)
     Dates: start: 20120403

REACTIONS (1)
  - LOWER RESPIRATORY TRACT INFECTION [None]
